FAERS Safety Report 25640230 (Version 2)
Quarter: 2025Q3

REPORT INFORMATION
  Report Type: Spontaneous
  Country: EU (occurrence: EU)
  Receive Date: 20250804
  Receipt Date: 20250811
  Transmission Date: 20251020
  Serious: Yes (Life-Threatening, Hospitalization)
  Sender: MACLEODS
  Company Number: EU-MACLEODS PHARMA-MAC2025054444

PATIENT

DRUGS (2)
  1. LEVOTHYROXINE [Suspect]
     Active Substance: LEVOTHYROXINE
     Indication: Hypothyroidism
     Route: 065
  2. LEVOTHYROXINE [Suspect]
     Active Substance: LEVOTHYROXINE
     Indication: Autoimmune thyroiditis
     Route: 065

REACTIONS (2)
  - Hyperthyroidism [Recovered/Resolved]
  - Addison^s disease [Recovered/Resolved]
